FAERS Safety Report 23912488 (Version 1)
Quarter: 2024Q2

REPORT INFORMATION
  Report Type: Spontaneous
  Country: AU (occurrence: AU)
  Receive Date: 20240528
  Receipt Date: 20240528
  Transmission Date: 20240717
  Serious: Yes (Other)
  Sender: FDA-Public Use
  Company Number: None

PATIENT
  Age: 42 Year
  Sex: Male

DRUGS (1)
  1. AMOXICILLIN [Suspect]
     Active Substance: AMOXICILLIN
     Indication: Bronchitis bacterial
     Dosage: 500 MG
     Route: 065

REACTIONS (2)
  - Bone density decreased [Unknown]
  - Crepitations [Unknown]

NARRATIVE: CASE EVENT DATE: 20230807
